FAERS Safety Report 13509963 (Version 2)
Quarter: 2017Q3

REPORT INFORMATION
  Report Type: Spontaneous
  Country: US (occurrence: US)
  Receive Date: 20170503
  Receipt Date: 20170803
  Transmission Date: 20171127
  Serious: No
  Sender: FDA-Public Use
  Company Number: US-SA-2017SA057730

PATIENT
  Age: 75 Year
  Sex: Female
  Weight: 70.3 kg

DRUGS (4)
  1. CRESTOR [Concomitant]
     Active Substance: ROSUVASTATIN CALCIUM
  2. ALIROCUMAB PREFILLED PEN [Suspect]
     Active Substance: ALIROCUMAB
     Indication: BLOOD CHOLESTEROL INCREASED
     Dates: start: 20170330
  3. PRALUENT [Suspect]
     Active Substance: ALIROCUMAB
     Indication: BLOOD CHOLESTEROL INCREASED
     Route: 058
     Dates: start: 20170330
  4. ZETIA [Concomitant]
     Active Substance: EZETIMIBE

REACTIONS (2)
  - Injection site haemorrhage [Recovered/Resolved]
  - Device use issue [Unknown]

NARRATIVE: CASE EVENT DATE: 20170330
